FAERS Safety Report 5340718-X (Version None)
Quarter: 2007Q2

REPORT INFORMATION
  Report Type: 
  Country: None (occurrence: None)
  Receive Date: 20070405
  Receipt Date: 20061204
  Transmission Date: 20071010
  Serious: No
  Sender: FDA-Public Use
  Company Number: US200612000842

PATIENT
  Age: 60 Year
  Sex: Female

DRUGS (5)
  1. CYMBALTA [Suspect]
     Indication: MAJOR DEPRESSION
     Dosage: SEE IMAGE
  2. CLONOPIN [Concomitant]
  3. GEODON [Concomitant]
  4. SYNGYNON (ESTRADIOL BENZOATE, HYDROXYPROGESTERONE CAPROATE) [Concomitant]
  5. PREMARIN [Concomitant]

REACTIONS (2)
  - TARDIVE DYSKINESIA [None]
  - TRISMUS [None]
